FAERS Safety Report 4561115-0 (Version None)
Quarter: 2005Q1

REPORT INFORMATION
  Report Type: 
  Country: None (occurrence: None)
  Receive Date: 20050121
  Receipt Date: 20050111
  Transmission Date: 20050727
  Serious: Yes (Death, Life-Threatening, Hospitalization)
  Sender: FDA-Public Use
  Company Number: US-2004-034715

PATIENT
  Age: 75 Year
  Sex: Female

DRUGS (10)
  1. CAMPATH [Suspect]
     Indication: WALDENSTROM'S MACROGLOBULINAEMIA
     Dosage: 3/10/30 MG THEN 30 MG 3X/WEEK, INTRAVENOUS
     Route: 042
     Dates: start: 20040823, end: 20040927
  2. TAMOXIFEN (TAMOXIFEN) [Concomitant]
  3. DAPSONE [Concomitant]
  4. FAMCICLOVIR (FAMCICLOVIR) [Concomitant]
  5. DIPHENHYDRAMINE (DIPHENHYDRAMINE) [Concomitant]
  6. METHYLPREDNISOLONE [Concomitant]
  7. ACETAMINOPHEN [Concomitant]
  8. HYDROCORTISONE SODIUM SUCCINATE [Concomitant]
  9. CIMETIDINE [Concomitant]
  10. RANITIDINE HYDROCHLORIDE [Concomitant]

REACTIONS (9)
  - COUGH [None]
  - CYTOMEGALOVIRUS ENTERITIS [None]
  - DIFFUSE ALVEOLAR DAMAGE [None]
  - HYPOXIA [None]
  - LUNG INFECTION [None]
  - LUNG INFILTRATION [None]
  - PANCYTOPENIA [None]
  - PYREXIA [None]
  - RESPIRATORY FAILURE [None]
